FAERS Safety Report 6778914-7 (Version None)
Quarter: 2010Q2

REPORT INFORMATION
  Report Type: 
  Country: None (occurrence: None)
  Receive Date: 20100618
  Receipt Date: 20100610
  Transmission Date: 20101027
  Serious: Yes (Other)
  Sender: FDA-Public Use
  Company Number: US-JNJFOC-20100603793

PATIENT
  Age: 54 Year
  Sex: Female
  Weight: 81.65 kg

DRUGS (2)
  1. CONCERTA [Suspect]
     Indication: INTENTIONAL DRUG MISUSE
     Route: 048
  2. METHYLPHENIDATE [Concomitant]
     Indication: DISTURBANCE IN ATTENTION
     Route: 048

REACTIONS (1)
  - INTENTIONAL DRUG MISUSE [None]
